FAERS Safety Report 18604637 (Version 1)
Quarter: 2020Q4

REPORT INFORMATION
  Report Type: Spontaneous
  Country: US (occurrence: US)
  Receive Date: 20201211
  Receipt Date: 20201211
  Transmission Date: 20210114
  Serious: No
  Sender: FDA-Public Use
  Company Number: US-BRISTOL-MYERS SQUIBB COMPANY-BMS-2020-105472

PATIENT
  Age: 55 Year
  Sex: Male

DRUGS (1)
  1. ELIQUIS [Suspect]
     Active Substance: APIXABAN
     Indication: VEIN DISORDER
     Dosage: UNK, BID
     Route: 048
     Dates: start: 20201202

REACTIONS (4)
  - Vision blurred [Unknown]
  - Intentional product use issue [Unknown]
  - Diplopia [Unknown]
  - Fatigue [Unknown]

NARRATIVE: CASE EVENT DATE: 20201204
